FAERS Safety Report 21057657 (Version 4)
Quarter: 2022Q3

REPORT INFORMATION
  Report Type: Report from Study
  Country: CA (occurrence: CA)
  Receive Date: 20220708
  Receipt Date: 20220909
  Transmission Date: 20221027
  Serious: Yes (Hospitalization, Other)
  Sender: FDA-Public Use
  Company Number: CA-JNJFOC-20220707813

PATIENT
  Age: 53 Year
  Sex: Female

DRUGS (2)
  1. STELARA [Suspect]
     Active Substance: USTEKINUMAB
     Indication: Crohn^s disease
     Route: 058
     Dates: start: 20200821
  2. STELARA [Suspect]
     Active Substance: USTEKINUMAB

REACTIONS (7)
  - Postoperative wound infection [Recovering/Resolving]
  - Faecal vomiting [Unknown]
  - Limb mass [Unknown]
  - Crohn^s disease [Unknown]
  - Lymphadenopathy [Unknown]
  - Gastric disorder [Unknown]
  - Scab [Unknown]

NARRATIVE: CASE EVENT DATE: 20220601
